FAERS Safety Report 17561871 (Version 1)
Quarter: 2020Q1

REPORT INFORMATION
  Report Type: Spontaneous
  Country: US (occurrence: US)
  Receive Date: 20200319
  Receipt Date: 20200319
  Transmission Date: 20200409
  Serious: No
  Sender: FDA-Public Use
  Company Number: US-TEVA-2020-US-1201118

PATIENT
  Age: 59 Year
  Sex: Female

DRUGS (5)
  1. BRILINTA [Concomitant]
     Active Substance: TICAGRELOR
  2. IMDUR [Concomitant]
     Active Substance: ISOSORBIDE MONONITRATE
  3. PLAVIX [Concomitant]
     Active Substance: CLOPIDOGREL BISULFATE
     Route: 065
  4. RANOLAZINE. [Suspect]
     Active Substance: RANOLAZINE
     Indication: ANGINA UNSTABLE
     Dosage: EXTENDED-RELEASE 500 MG TABLETS
     Route: 065
     Dates: start: 20200221
  5. NITROGLYCERIN. [Concomitant]
     Active Substance: NITROGLYCERIN

REACTIONS (2)
  - Vision blurred [Not Recovered/Not Resolved]
  - Headache [Not Recovered/Not Resolved]
